FAERS Safety Report 8180579-7 (Version None)
Quarter: 2012Q1

REPORT INFORMATION
  Report Type: 
  Country: None (occurrence: None)
  Receive Date: 20120302
  Receipt Date: 20120227
  Transmission Date: 20120608
  Serious: Yes (Death, Hospitalization)
  Sender: FDA-Public Use
  Company Number: IN-ROCHE-1043765

PATIENT
  Age: 58 Year
  Sex: Female

DRUGS (2)
  1. PEGINTERFERON ALFA-2A [Suspect]
     Indication: HEPATITIS C
     Route: 065
  2. EPOGEN [Concomitant]
     Indication: NEPHROGENIC ANAEMIA
     Route: 065

REACTIONS (9)
  - DEMYELINATING POLYNEUROPATHY [None]
  - RESPIRATORY DISTRESS [None]
  - ASTHENIA [None]
  - GENERAL PHYSICAL HEALTH DETERIORATION [None]
  - INFLUENZA LIKE ILLNESS [None]
  - GUILLAIN-BARRE SYNDROME [None]
  - PNEUMONIA [None]
  - GAIT DISTURBANCE [None]
  - MUSCULAR WEAKNESS [None]
